FAERS Safety Report 5638689-1 (Version None)
Quarter: 2008Q1

REPORT INFORMATION
  Report Type: 
  Country: None (occurrence: None)
  Receive Date: 20080226
  Receipt Date: 20080128
  Transmission Date: 20080703
  Serious: No
  Sender: FDA-Public Use
  Company Number: A0690328A

PATIENT
  Age: 49 Year
  Sex: Female

DRUGS (14)
  1. IMITREX [Suspect]
     Indication: MIGRAINE
     Dosage: 6MG AS REQUIRED
     Route: 058
     Dates: start: 20020101
  2. TOPAMAX [Concomitant]
  3. IMITREX [Concomitant]
  4. PREVACID [Concomitant]
  5. HORMONE PATCH [Concomitant]
  6. EFFEXOR [Concomitant]
  7. TRICOR [Concomitant]
  8. LIPITOR [Concomitant]
  9. DARVOCET [Concomitant]
  10. SINGULAIR [Concomitant]
  11. MULTI-VITAMIN [Concomitant]
  12. CALCIUM SUPPLEMENT [Concomitant]
  13. GARLIC PILLS [Concomitant]
  14. PROMETHAZINE [Concomitant]

REACTIONS (2)
  - PHARMACEUTICAL PRODUCT COMPLAINT [None]
  - THERAPEUTIC RESPONSE DELAYED [None]
